FAERS Safety Report 23385001 (Version 1)
Quarter: 2024Q1

REPORT INFORMATION
  Report Type: Report from Study
  Country: CA (occurrence: CA)
  Receive Date: 20240109
  Receipt Date: 20240109
  Transmission Date: 20240410
  Serious: Yes (Hospitalization, Other)
  Sender: FDA-Public Use
  Company Number: CA-ABBVIE-5574689

PATIENT
  Sex: Female

DRUGS (2)
  1. RINVOQ [Suspect]
     Active Substance: UPADACITINIB
     Indication: Rheumatoid arthritis
     Dosage: FIRST ADMIN DATE WAS DEC 2023.
     Route: 048
  2. RINVOQ [Suspect]
     Active Substance: UPADACITINIB
     Indication: Rheumatoid arthritis
     Route: 048
     Dates: start: 202210, end: 20231204

REACTIONS (14)
  - Infectious pleural effusion [Recovered/Resolved]
  - Type 2 diabetes mellitus [Unknown]
  - Upper respiratory tract infection [Unknown]
  - Rhinorrhoea [Unknown]
  - Renal disorder [Unknown]
  - Gastric ulcer [Unknown]
  - Ulcer haemorrhage [Unknown]
  - Dyspnoea [Unknown]
  - Pyrexia [Unknown]
  - Haemorrhoids [Unknown]
  - Pleural effusion [Unknown]
  - Pneumonia [Unknown]
  - Iron deficiency anaemia [Unknown]
  - Haemoglobin abnormal [Unknown]

NARRATIVE: CASE EVENT DATE: 20230101
